FAERS Safety Report 10013362 (Version 2)
Quarter: 2014Q2

REPORT INFORMATION
  Report Type: Spontaneous
  Country: US (occurrence: US)
  Receive Date: 20140314
  Receipt Date: 20140425
  Transmission Date: 20141212
  Serious: No
  Sender: FDA-Public Use
  Company Number: US-PFIZER INC-2014073425

PATIENT
  Age: 66 Year
  Sex: 0

DRUGS (1)
  1. CELEBREX [Suspect]
     Indication: ARTHRALGIA
     Dosage: 200 MG, UNK
     Route: 048
     Dates: start: 201301, end: 201402

REACTIONS (4)
  - Lichenification [Recovered/Resolved]
  - Lichen planus [Recovered/Resolved]
  - Oral pain [Recovered/Resolved]
  - Gingival pain [Recovered/Resolved]
